FAERS Safety Report 23428825 (Version 4)
Quarter: 2024Q4

REPORT INFORMATION
  Report Type: Spontaneous
  Country: US (occurrence: US)
  Receive Date: 20240122
  Receipt Date: 20241218
  Transmission Date: 20250115
  Serious: Yes (Death, Hospitalization)
  Sender: PFIZER
  Company Number: US-PFIZER INC-PV202400008504

PATIENT
  Age: 90 Year
  Sex: Male
  Weight: 69.841 kg

DRUGS (11)
  1. VYNDAMAX [Suspect]
     Active Substance: TAFAMIDIS
     Indication: Acquired ATTR amyloidosis
     Dosage: 61 MG, 1X/DAY IN THE MORNING
     Route: 048
     Dates: start: 20220509, end: 20240904
  2. VYNDAMAX [Suspect]
     Active Substance: TAFAMIDIS
     Indication: Cardiac amyloidosis
  3. VYNDAMAX [Suspect]
     Active Substance: TAFAMIDIS
     Indication: Cardiac failure congestive
  4. VYNDAMAX [Suspect]
     Active Substance: TAFAMIDIS
     Indication: Bacteraemia
  5. VYNDAMAX [Suspect]
     Active Substance: TAFAMIDIS
     Indication: Troponin increased
  6. VYNDAMAX [Suspect]
     Active Substance: TAFAMIDIS
     Indication: Cardiac failure
  7. VYNDAMAX [Suspect]
     Active Substance: TAFAMIDIS
     Indication: Heart failure with preserved ejection fraction
  8. VYNDAMAX [Suspect]
     Active Substance: TAFAMIDIS
     Indication: Chronic left ventricular failure
  9. NEURONTIN [Concomitant]
     Active Substance: GABAPENTIN
     Dosage: 300 MG, 2X/DAY IN THE MORNING AND AT BEDTIME
     Route: 048
     Dates: start: 20190618
  10. SYNTHROID [Concomitant]
     Active Substance: LEVOTHYROXINE SODIUM
     Dosage: 137 UG, 1X/DAY
     Route: 048
     Dates: start: 20230226
  11. LEVOXYL [Concomitant]
     Active Substance: LEVOTHYROXINE SODIUM
     Dosage: 137 UG, 1X/DAY
     Route: 048
     Dates: start: 20230226

REACTIONS (4)
  - Death [Fatal]
  - Fall [Unknown]
  - Endocarditis [Unknown]
  - Infection [Unknown]

NARRATIVE: CASE EVENT DATE: 20241213
